FAERS Safety Report 4355955-0 (Version None)
Quarter: 2004Q2

REPORT INFORMATION
  Report Type: 
  Country: None (occurrence: None)
  Receive Date: 20040510
  Receipt Date: 20040420
  Transmission Date: 20050107
  Serious: Yes (Hospitalization)
  Sender: FDA-Public Use
  Company Number: 7876

PATIENT
  Age: 35 Year
  Sex: Male

DRUGS (9)
  1. VINCRISTINE [Suspect]
     Indication: BRAIN NEOPLASM
     Dosage: 2 MG IV
     Route: 042
     Dates: start: 20040205, end: 20040205
  2. CISPLATIN [Suspect]
     Indication: BRAIN NEOPLASM
     Dosage: 130 MG IV
     Route: 042
     Dates: start: 20040205, end: 20040205
  3. PROCARBAZINE [Suspect]
     Indication: BRAIN NEOPLASM
     Dosage: 100 MG PO
     Route: 048
     Dates: start: 20040205, end: 20040205
  4. CYTARABINE [Suspect]
     Indication: BRAIN NEOPLASM
     Dosage: 450 MG IV
     Route: 042
     Dates: start: 20040205, end: 20040205
  5. DACARBAZINE [Suspect]
     Indication: BRAIN NEOPLASM
     Dosage: 200 MG IV
     Route: 042
     Dates: start: 20040205, end: 20040205
  6. HYDROXYUREA [Suspect]
     Indication: BRAIN NEOPLASM
     Dosage: 500 MG PO
     Route: 048
     Dates: start: 20040205, end: 20040205
  7. CARMUSTINE [Suspect]
     Dosage: 135 MG IV
     Route: 042
     Dates: start: 20040205, end: 20040205
  8. METHYLPREDNISOLONE [Suspect]
     Dosage: 120 MG IV
     Route: 042
     Dates: start: 20040205, end: 20040205
  9. ALIZAPRIDE [Suspect]
     Dosage: 50 MG IV
     Route: 042
     Dates: start: 20040205, end: 20040205

REACTIONS (1)
  - URTICARIA [None]
